FAERS Safety Report 22725901 (Version 2)
Quarter: 2024Q3

REPORT INFORMATION
  Report Type: Report from Study
  Country: US (occurrence: US)
  Receive Date: 20230719
  Receipt Date: 20240919
  Transmission Date: 20241016
  Serious: Yes (Other)
  Sender: ABBVIE
  Company Number: US-ABBVIE-4337038

PATIENT
  Age: 58 Year
  Sex: Female

DRUGS (3)
  1. HUMIRA [Suspect]
     Active Substance: ADALIMUMAB
     Indication: Rheumatoid arthritis
     Dosage: CITRATE FREE
     Route: 058
     Dates: start: 20220520, end: 202212
  2. HUMIRA [Suspect]
     Active Substance: ADALIMUMAB
     Dosage: CITRATE FREE
     Route: 058
     Dates: start: 20230302, end: 2024
  3. HUMIRA [Suspect]
     Active Substance: ADALIMUMAB
     Dosage: CITRATE FREE
     Route: 058
     Dates: start: 202212, end: 202302

REACTIONS (18)
  - Joint effusion [Recovering/Resolving]
  - Upper respiratory tract infection [Unknown]
  - Blood pressure increased [Unknown]
  - Nasopharyngitis [Unknown]
  - Peripheral swelling [Not Recovered/Not Resolved]
  - Road traffic accident [Recovered/Resolved]
  - Influenza [Unknown]
  - Enteritis infectious [Recovered/Resolved]
  - Back pain [Not Recovered/Not Resolved]
  - Swelling [Not Recovered/Not Resolved]
  - Hypertrophic scar [Not Recovered/Not Resolved]
  - Joint swelling [Unknown]
  - Stress [Unknown]
  - Inflammation [Unknown]
  - Tooth loss [Unknown]
  - Urticaria [Unknown]
  - Fluid retention [Recovered/Resolved]
  - Oral pustule [Not Recovered/Not Resolved]

NARRATIVE: CASE EVENT DATE: 20221020
